FAERS Safety Report 17376097 (Version 3)
Quarter: 2020Q1

REPORT INFORMATION
  Report Type: Report from Study
  Country: CO (occurrence: CO)
  Receive Date: 20200206
  Receipt Date: 20200314
  Transmission Date: 20200409
  Serious: Yes (Hospitalization)
  Sender: FDA-Public Use
  Company Number: CO-ACTELION-A-CH2020-201588

PATIENT
  Age: 71 Year
  Sex: Female
  Weight: 70 kg

DRUGS (1)
  1. MACITENTAN [Suspect]
     Active Substance: MACITENTAN
     Indication: PULMONARY ARTERIAL HYPERTENSION
     Dosage: 10 MG, QD
     Route: 048
     Dates: start: 201910

REACTIONS (4)
  - Angioplasty [Recovering/Resolving]
  - Catheter placement [Recovering/Resolving]
  - Choking [Not Recovered/Not Resolved]
  - Tracheobronchial stent insertion [Not Recovered/Not Resolved]

NARRATIVE: CASE EVENT DATE: 202001
